FAERS Safety Report 5403032-X (Version None)
Quarter: 2007Q3

REPORT INFORMATION
  Report Type: 
  Country: None (occurrence: None)
  Receive Date: 20070713
  Receipt Date: 20070219
  Transmission Date: 20080115
  Serious: Yes (Other)
  Sender: FDA-Public Use
  Company Number: 483901

PATIENT
  Sex: Female

DRUGS (1)
  1. BONIVA [Suspect]
     Indication: OSTEOPOROSIS
     Dosage: 150 MG  1 PER MONTH  ORAL
     Route: 048

REACTIONS (2)
  - ABDOMINAL PAIN UPPER [None]
  - GASTRIC ULCER [None]
